FAERS Safety Report 5875206-5 (Version None)
Quarter: 2008Q3

REPORT INFORMATION
  Report Type: 
  Country: None (occurrence: None)
  Receive Date: 20080909
  Receipt Date: 20080829
  Transmission Date: 20090109
  Serious: Yes (Hospitalization)
  Sender: FDA-Public Use
  Company Number: FR-EISAI MEDIAL RESEARCH-E3810-02121-SPO-FR

PATIENT
  Age: 66 Year
  Sex: Female

DRUGS (11)
  1. RABEPRAZOLE SODIUM [Suspect]
     Route: 048
     Dates: end: 20080701
  2. HYTACAND [Suspect]
     Indication: HYPERTENSION
     Dosage: UNKNOWN
     Route: 048
  3. GLUCOPHAGE [Concomitant]
  4. LEVOTHYROXINE SODIUM [Concomitant]
  5. TEMERIT [Concomitant]
  6. ATACAND [Concomitant]
  7. ALDACTONE [Concomitant]
  8. ZANIDIP [Concomitant]
  9. ALLOPURINOL [Concomitant]
  10. MAGNE B6 [Concomitant]
  11. DIFFU K [Concomitant]

REACTIONS (1)
  - HYPONATRAEMIA [None]
